FAERS Safety Report 25077373 (Version 1)
Quarter: 2025Q1

REPORT INFORMATION
  Report Type: Report from Study
  Country: US (occurrence: US)
  Receive Date: 20250314
  Receipt Date: 20250314
  Transmission Date: 20250408
  Serious: Yes (Death, Other)
  Sender: ACADIA PHARMACEUTICALS
  Company Number: US-ACADIA PHARMACEUTICALS INC.-ACA-2025-PIM-002625

PATIENT
  Age: 71 Year
  Sex: Male

DRUGS (10)
  1. NUPLAZID [Suspect]
     Active Substance: PIMAVANSERIN TARTRATE
     Indication: Parkinson^s disease
     Dosage: 10 MILLIGRAM, QD
     Route: 048
     Dates: start: 20221010, end: 20241111
  2. ATORVASTATIN [Concomitant]
     Active Substance: ATORVASTATIN
  3. BUSPIRONE [Concomitant]
     Active Substance: BUSPIRONE HYDROCHLORIDE
  4. CARBIDOPA\LEVODOPA [Concomitant]
     Active Substance: CARBIDOPA\LEVODOPA
  5. CLONAZEPAM [Concomitant]
     Active Substance: CLONAZEPAM
  6. DONEPEZIL [Concomitant]
     Active Substance: DONEPEZIL
  7. LINZESS [Concomitant]
     Active Substance: LINACLOTIDE
  8. MEMANTINE [Concomitant]
     Active Substance: MEMANTINE
  9. MIDODRIN [Concomitant]
  10. VENLAFAXINE [Concomitant]
     Active Substance: VENLAFAXINE HYDROCHLORIDE

REACTIONS (1)
  - Death [Fatal]

NARRATIVE: CASE EVENT DATE: 20250215
